FAERS Safety Report 9373405 (Version 2)
Quarter: 2013Q3

REPORT INFORMATION
  Report Type: Spontaneous
  Country: FR (occurrence: FR)
  Receive Date: 20130627
  Receipt Date: 20130801
  Transmission Date: 20140515
  Serious: Yes (Hospitalization)
  Sender: FDA-Public Use
  Company Number: FR-TEVA-415704ISR

PATIENT
  Age: 69 Year
  Sex: Female
  Weight: 86 kg

DRUGS (13)
  1. FUROSEMIDE TEVA 40MG [Suspect]
     Dosage: 40 MILLIGRAM DAILY;
     Route: 048
     Dates: start: 20130511, end: 20130512
  2. FUROSEMIDE TEVA 40MG [Suspect]
     Dosage: 80 MILLIGRAM DAILY;
     Route: 048
     Dates: start: 20130513
  3. FUROSEMIDE TEVA 40MG [Suspect]
     Dosage: 120 MILLIGRAM DAILY;
     Route: 048
     Dates: start: 20130605, end: 20130609
  4. HEMIGOXINE [Concomitant]
  5. MICARDIS 80 [Concomitant]
  6. AVLOCARDYL 160 [Concomitant]
  7. ALLOPURINOL TEVA 100 [Concomitant]
  8. COUMADINE [Concomitant]
  9. DIFFU K [Concomitant]
  10. METFORMINE TEVA 1000 [Concomitant]
  11. OMEPRAZOLE 20 TEVA [Concomitant]
     Dosage: 20 MILLIGRAM DAILY;
  12. AMOXICILLINE TEVA [Concomitant]
     Dosage: 3 GRAM DAILY;
  13. CLARELUX [Concomitant]

REACTIONS (8)
  - Inflammation [Unknown]
  - Erysipelas [Unknown]
  - Dyspnoea [Recovered/Resolved]
  - Cardiac failure [Recovered/Resolved]
  - Fatigue [Unknown]
  - Oedema [Unknown]
  - Somnolence [Unknown]
  - Drug ineffective [Unknown]
